FAERS Safety Report 6253406-2 (Version None)
Quarter: 2009Q3

REPORT INFORMATION
  Report Type: 
  Country: None (occurrence: None)
  Receive Date: 20090701
  Receipt Date: 20090623
  Transmission Date: 20100115
  Serious: Yes (Other)
  Sender: FDA-Public Use
  Company Number: US-PURDUE-USA-2009-0038794

PATIENT
  Sex: Male

DRUGS (1)
  1. OXYCODONE HYDROCHLORIDE [Suspect]
     Indication: SURGERY
     Dosage: 30 MG, Q4H

REACTIONS (3)
  - BRAIN NEOPLASM [None]
  - DIZZINESS [None]
  - ROAD TRAFFIC ACCIDENT [None]
